FAERS Safety Report 11370863 (Version 4)
Quarter: 2015Q4

REPORT INFORMATION
  Report Type: Spontaneous
  Country: CN (occurrence: CN)
  Receive Date: 20150812
  Receipt Date: 20151022
  Transmission Date: 20160304
  Serious: Yes (Hospitalization, Other)
  Sender: FDA-Public Use
  Company Number: CN-VIIV HEALTHCARE LIMITED-CN2015GSK113038

PATIENT
  Age: 51 Year
  Sex: Male
  Weight: 100 kg

DRUGS (4)
  1. VIREAD [Suspect]
     Active Substance: TENOFOVIR DISOPROXIL FUMARATE
     Indication: HEPATITIS B
     Dosage: 300 MG, QD
     Route: 048
     Dates: start: 201502, end: 201504
  2. HEPTODIN [Suspect]
     Active Substance: LAMIVUDINE
     Indication: HEPATITIS B
     Dosage: 100 MG, QD
     Route: 048
     Dates: start: 2000, end: 2007
  3. ENTECAVIR. [Suspect]
     Active Substance: ENTECAVIR
     Indication: HEPATITIS B
     Dosage: 0.5 MG, QD
     Route: 048
     Dates: start: 2007, end: 201502
  4. HEPSERA [Suspect]
     Active Substance: ADEFOVIR DIPIVOXIL
     Indication: HEPATITIS B
     Dosage: 10 MG, QD
     Route: 048
     Dates: start: 2002, end: 2007

REACTIONS (3)
  - Drug resistance [Unknown]
  - Blood creatinine increased [Recovered/Resolved]
  - Renal impairment [Recovered/Resolved]

NARRATIVE: CASE EVENT DATE: 2002
